FAERS Safety Report 6305802-2 (Version None)
Quarter: 2009Q3

REPORT INFORMATION
  Report Type: 
  Country: None (occurrence: None)
  Receive Date: 20090806
  Receipt Date: 20090115
  Transmission Date: 20100115
  Serious: Yes (Hospitalization)
  Sender: FDA-Public Use
  Company Number: 1-17291723

PATIENT
  Age: 69 Year
  Sex: Female
  Weight: 74.3899 kg

DRUGS (1)
  1. BACTRIM DS [Suspect]
     Indication: URINARY TRACT INFECTION
     Dosage: 160/800MG TWICE DAILY, ORAL
     Route: 048
     Dates: start: 20081021, end: 20081028

REACTIONS (3)
  - DUODENAL ULCER [None]
  - NEUTROPENIA [None]
  - RASH [None]
